FAERS Safety Report 9261484 (Version 1)
Quarter: 2013Q2

REPORT INFORMATION
  Report Type: Spontaneous
  Country: CA (occurrence: CA)
  Receive Date: 20130429
  Receipt Date: 20130429
  Transmission Date: 20140414
  Serious: Yes (Hospitalization)
  Sender: FDA-Public Use
  Company Number: PHHY2013CA040838

PATIENT
  Age: 36 Year
  Sex: Female

DRUGS (7)
  1. TACROLIMUS [Suspect]
     Indication: IMMUNOSUPPRESSION
     Dosage: 0.5 MG, BID (DOSE REDUCED BY 50%)
  2. TACROLIMUS [Suspect]
     Dosage: 0.5 MG, TIW
  3. RIBAVIRIN [Suspect]
     Dosage: 400 MG, BID
  4. PEGINTERFERON ALFA-2B [Suspect]
     Dosage: 48 UG, UNK
  5. MYCOPHENOLATE MOFETIL [Suspect]
     Indication: IMMUNOSUPPRESSION
  6. BOCEPREVIR [Suspect]
     Dosage: 800 MG, TID
  7. CORTICOSTEROIDS [Suspect]

REACTIONS (9)
  - Hepatitis cholestatic [Recovered/Resolved]
  - Jaundice [Recovered/Resolved]
  - Hepatitis C [Recovered/Resolved]
  - Hepatic function abnormal [Recovered/Resolved]
  - Hepatic enzyme increased [Recovered/Resolved]
  - Ascites [Recovered/Resolved]
  - Renal impairment [Unknown]
  - Anaemia [Recovering/Resolving]
  - Neutropenia [Recovering/Resolving]
